FAERS Safety Report 11751646 (Version 1)
Quarter: 2015Q4

REPORT INFORMATION
  Report Type: Spontaneous
  Country: US (occurrence: None)
  Receive Date: 20151117
  Receipt Date: 20151117
  Transmission Date: 20160304
  Serious: No
  Sender: FDA-Public Use
  Company Number: SOM-4802-AE

PATIENT
  Age: 6 Year
  Sex: Female

DRUGS (1)
  1. CYTRA-K CRYSTALS [Suspect]
     Active Substance: CITRIC ACID MONOHYDRATE\POTASSIUM CITRATE
     Indication: ACIDOSIS
     Dosage: I PACK
     Route: 048
     Dates: start: 20150929, end: 20151030

REACTIONS (1)
  - Oral discomfort [None]

NARRATIVE: CASE EVENT DATE: 20151030
